FAERS Safety Report 5160744-3 (Version None)
Quarter: 2006Q4

REPORT INFORMATION
  Report Type: 
  Country: None (occurrence: None)
  Receive Date: 20061121
  Receipt Date: 20061110
  Transmission Date: 20070319
  Serious: Yes (Death)
  Sender: FDA-Public Use
  Company Number: SPV1-2006-01666

PATIENT
  Age: 26 Year

DRUGS (3)
  1. ADDERALL 10 [Suspect]
     Dosage: ORAL
     Route: 048
  2. COCAINE(COCAINE) [Suspect]
     Dosage: ORAL
     Route: 048
  3. OPIOID UNSPECIFIED [Suspect]
     Dosage: ORAL
     Route: 048

REACTIONS (1)
  - INTENTIONAL DRUG MISUSE [None]
